FAERS Safety Report 12859705 (Version 4)
Quarter: 2016Q4

REPORT INFORMATION
  Report Type: Spontaneous
  Country: CH (occurrence: CH)
  Receive Date: 20161018
  Receipt Date: 20161103
  Transmission Date: 20170207
  Serious: Yes (Death, Life-Threatening, Hospitalization, Other)
  Sender: FDA-Public Use
  Company Number: CH-ASTRAZENECA-2016SF07703

PATIENT
  Age: 948 Month
  Sex: Female

DRUGS (22)
  1. BELOC ZOK [Concomitant]
     Active Substance: METOPROLOL SUCCINATE
     Indication: HYPERTENSION
     Route: 048
  2. MOVICOL [Concomitant]
     Active Substance: POLYETHYLENE GLYCOL 3350\POTASSIUM CHLORIDE\SODIUM BICARBONATE\SODIUM CHLORIDE
     Indication: PRODUCT USED FOR UNKNOWN INDICATION
     Route: 048
  3. DUROGESIC [Concomitant]
     Active Substance: FENTANYL
     Indication: PAIN
     Dosage: 25 UG/HOURS, EVERY THIRD DAY
     Route: 062
  4. FOLIC ACID. [Concomitant]
     Active Substance: FOLIC ACID
     Dates: end: 20161005
  5. NEXIUM [Suspect]
     Active Substance: ESOMEPRAZOLE MAGNESIUM
     Indication: GASTROOESOPHAGEAL REFLUX PROPHYLAXIS
     Route: 048
  6. SPIRICORT [Concomitant]
     Active Substance: PREDNISOLONE
     Indication: RHEUMATOID ARTHRITIS
     Route: 048
  7. COAPROVEL FORTE [Interacting]
     Active Substance: HYDROCHLOROTHIAZIDE\IRBESARTAN
     Indication: HYPERTENSION
     Dosage: 300/12 MG, 1 DF, EVERY DAY
     Route: 048
     Dates: end: 201609
  8. METHOTREXATE FARMOS [Interacting]
     Active Substance: METHOTREXATE
     Indication: RHEUMATOID ARTHRITIS
     Route: 048
     Dates: start: 20160921, end: 20160923
  9. NOVALGIN [Interacting]
     Active Substance: METAMIZOLE SODIUM
     Indication: PAIN
     Route: 048
     Dates: end: 20160924
  10. AMLODIPIN [Concomitant]
     Active Substance: AMLODIPINE BESYLATE
     Indication: HYPERTENSION
     Route: 048
  11. SERESTA [Concomitant]
     Active Substance: OXAZEPAM
     Indication: PRODUCT USED FOR UNKNOWN INDICATION
     Route: 048
  12. DUPHALAC [Concomitant]
     Active Substance: LACTULOSE
     Route: 048
  13. KCL [Concomitant]
     Active Substance: POTASSIUM CHLORIDE
     Indication: PRODUCT USED FOR UNKNOWN INDICATION
     Route: 048
  14. DUROGESIC [Concomitant]
     Active Substance: FENTANYL
     Indication: PAIN
     Dosage: 50 UG/HOURS, EVERY THIRD DAY
     Route: 062
  15. SYMBICORT [Concomitant]
     Active Substance: BUDESONIDE\FORMOTEROL FUMARATE DIHYDRATE
     Indication: CHRONIC OBSTRUCTIVE PULMONARY DISEASE
     Dosage: 1 DF, EVERY DAY, 200/6
     Route: 055
  16. METHOTREXATE FARMOS [Interacting]
     Active Substance: METHOTREXATE
     Indication: RHEUMATOID ARTHRITIS
     Route: 048
     Dates: start: 1991
  17. DAFALGAN [Interacting]
     Active Substance: ACETAMINOPHEN
     Indication: PAIN
     Route: 048
  18. CLEXANE [Interacting]
     Active Substance: ENOXAPARIN SODIUM
     Indication: THROMBOSIS PROPHYLAXIS
     Route: 058
  19. ANAFRANIL [Concomitant]
     Active Substance: CLOMIPRAMINE HYDROCHLORIDE
     Indication: PRODUCT USED FOR UNKNOWN INDICATION
     Route: 048
  20. TRAMAL [Concomitant]
     Active Substance: TRAMADOL
     Indication: PAIN
     Route: 048
  21. NEXIUM CONTROL [Interacting]
     Active Substance: ESOMEPRAZOLE MAGNESIUM
     Indication: GASTROOESOPHAGEAL REFLUX PROPHYLAXIS
     Route: 048
  22. NOVALGIN [Interacting]
     Active Substance: METAMIZOLE SODIUM
     Indication: PAIN
     Route: 048
     Dates: end: 20160924

REACTIONS (19)
  - Respiratory failure [Unknown]
  - Acute kidney injury [Fatal]
  - Pancytopenia [Fatal]
  - Systemic candida [Fatal]
  - Toxicity to various agents [Unknown]
  - Vomiting [Unknown]
  - Septic shock [Fatal]
  - Radius fracture [Unknown]
  - Hepatitis [Unknown]
  - Oral herpes [Fatal]
  - Fall [Unknown]
  - Mouth ulceration [Fatal]
  - Accidental overdose [Fatal]
  - Drug interaction [Unknown]
  - Disturbance in attention [Fatal]
  - Pneumonia [Unknown]
  - Bacterial disease carrier [Fatal]
  - Encephalopathy [Fatal]
  - Nausea [Unknown]

NARRATIVE: CASE EVENT DATE: 201609
